FAERS Safety Report 7533634-6 (Version None)
Quarter: 2011Q2

REPORT INFORMATION
  Report Type: 
  Country: None (occurrence: None)
  Receive Date: 20110608
  Receipt Date: 20060314
  Transmission Date: 20111010
  Serious: Yes (Hospitalization)
  Sender: FDA-Public Use
  Company Number: PHMT2005CA00490

PATIENT
  Sex: Female

DRUGS (2)
  1. CLOZAPINE [Suspect]
     Indication: PSYCHOTIC DISORDER
     Dosage: 100 MG, QHS
     Route: 048
     Dates: start: 20050101
  2. SERTRALINE HYDROCHLORIDE [Concomitant]
     Dosage: 200 MG, QHS
     Route: 048
     Dates: start: 20030101

REACTIONS (1)
  - TIBIA FRACTURE [None]
